FAERS Safety Report 6709768-2 (Version None)
Quarter: 2010Q2

REPORT INFORMATION
  Report Type: 
  Country: None (occurrence: None)
  Receive Date: 20100430
  Receipt Date: 20100414
  Transmission Date: 20101027
  Serious: No
  Sender: FDA-Public Use
  Company Number: 2010000868

PATIENT
  Age: 59 Year
  Sex: Female

DRUGS (2)
  1. TARCEVA [Suspect]
     Indication: LUNG NEOPLASM MALIGNANT
     Dosage: (150 MG, QD), ORAL
     Route: 048
     Dates: start: 20100105
  2. FENTANYL [Suspect]
     Indication: PAIN
     Dosage: (37.5 UG/KG, QD), OTHER
     Route: 050
     Dates: start: 20100121

REACTIONS (2)
  - DRUG TOLERANCE [None]
  - INHIBITORY DRUG INTERACTION [None]
